FAERS Safety Report 14900093 (Version 1)
Quarter: 2018Q2

REPORT INFORMATION
  Report Type: Spontaneous
  Country: DE (occurrence: DE)
  Receive Date: 20180516
  Receipt Date: 20180516
  Transmission Date: 20180711
  Serious: Yes (Other)
  Sender: FDA-Public Use
  Company Number: DE-DRREDDYS-GER/GER/18/0098868

PATIENT
  Age: 37 Year
  Sex: Female
  Weight: 52 kg

DRUGS (5)
  1. QUETIAPINE. [Suspect]
     Active Substance: QUETIAPINE
     Indication: PRODUCT USED FOR UNKNOWN INDICATION
     Dosage: 300 (MG/D RET)/ AT GW 32 PLUS 3 DOSAGE INCREASED TO 300 MG/D RET. (FROM 250), ADDITIONALLY 25MG NON-
     Dates: start: 20161231, end: 20170926
  2. SKINOREN [Concomitant]
     Active Substance: AZELAIC ACID
     Indication: PRODUCT USED FOR UNKNOWN INDICATION
     Dosage: 20 PERCENT
  3. BECLOMETASONE [Concomitant]
     Active Substance: BECLOMETHASONE DIPROPIONATE
     Indication: PRODUCT USED FOR UNKNOWN INDICATION
     Dosage: 100 (MICRO G/D (PRO SEITE 50 MICRO G))
     Dates: start: 20161231, end: 20170926
  4. MAGNETRANS FORTE [Concomitant]
     Active Substance: MAGNESIUM OXIDE
     Indication: PRODUCT USED FOR UNKNOWN INDICATION
     Dosage: 600 (MG/D)
  5. FOLIO (NEM) [Concomitant]
     Indication: PRODUCT USED FOR UNKNOWN INDICATION
     Dosage: 0.4 (MG/D )
     Dates: start: 20161231, end: 20170926

REACTIONS (1)
  - Gestational diabetes [Recovered/Resolved]
